FAERS Safety Report 20998412 (Version 2)
Quarter: 2022Q2

REPORT INFORMATION
  Report Type: Spontaneous
  Country: None (occurrence: US)
  Receive Date: 20220623
  Receipt Date: 20220623
  Transmission Date: 20220720
  Serious: Yes (Hospitalization)
  Sender: FDA-Public Use
  Company Number: US-Mission Pharmacal Company-2130198

PATIENT
  Age: 52 Year
  Sex: Female

DRUGS (1)
  1. THIOLA EC [Suspect]
     Active Substance: TIOPRONIN
     Indication: Cystinuria
     Route: 048
     Dates: start: 20191013

REACTIONS (4)
  - Haematuria [Unknown]
  - Drug ineffective [Unknown]
  - Bacterial infection [Unknown]
  - Hypersensitivity [Unknown]
